FAERS Safety Report 12242584 (Version 7)
Quarter: 2019Q3

REPORT INFORMATION
  Report Type: Report from Study
  Country: US (occurrence: US)
  Receive Date: 20160406
  Receipt Date: 20190927
  Transmission Date: 20191004
  Serious: Yes (Hospitalization, Other)
  Sender: FDA-Public Use
  Company Number: US-SA-2016SA054538

PATIENT
  Age: 38 Year
  Sex: Female

DRUGS (4)
  1. ALEMTUZUMAB [Suspect]
     Active Substance: ALEMTUZUMAB
     Indication: MULTIPLE SCLEROSIS
     Dosage: 12 MG,QD
     Route: 041
     Dates: start: 20160307, end: 20160310
  2. GABAPENTIN. [Concomitant]
     Active Substance: GABAPENTIN
     Indication: GAIT DISTURBANCE
  3. GABAPENTIN. [Concomitant]
     Active Substance: GABAPENTIN
     Indication: PAIN IN EXTREMITY
     Dosage: UNK UNK,UNK
     Route: 065
  4. ALEMTUZUMAB [Suspect]
     Active Substance: ALEMTUZUMAB
     Dosage: UNK UNK,UNK
     Route: 041
     Dates: start: 20160311, end: 20160311

REACTIONS (21)
  - Pulmonary oedema [Recovering/Resolving]
  - Injection site bruising [Not Recovered/Not Resolved]
  - Dehydration [Not Recovered/Not Resolved]
  - Fatigue [Recovered/Resolved]
  - Chest pain [Unknown]
  - Blood pressure increased [Unknown]
  - Unevaluable event [Not Recovered/Not Resolved]
  - Lung perforation [Recovered/Resolved]
  - Burning sensation [Not Recovered/Not Resolved]
  - Asthenia [Not Recovered/Not Resolved]
  - Feeling abnormal [Not Recovered/Not Resolved]
  - Dry skin [Not Recovered/Not Resolved]
  - Vein disorder [Not Recovered/Not Resolved]
  - Loss of consciousness [Unknown]
  - Cardiac failure congestive [Recovering/Resolving]
  - Cardiac perforation [Unknown]
  - Dyspnoea [Recovered/Resolved]
  - Wheezing [Unknown]
  - Oxygen saturation decreased [Unknown]
  - Haemoptysis [Unknown]
  - Fatigue [Not Recovered/Not Resolved]

NARRATIVE: CASE EVENT DATE: 201603
